FAERS Safety Report 7999893-0 (Version None)
Quarter: 2011Q4

REPORT INFORMATION
  Report Type: 
  Country: None (occurrence: None)
  Receive Date: 20111222
  Receipt Date: 20111212
  Transmission Date: 20120403
  Serious: No
  Sender: FDA-Public Use
  Company Number: US-BIOGENIDEC-2011BI047174

PATIENT
  Sex: Female

DRUGS (4)
  1. TYSABRI [Suspect]
     Indication: MULTIPLE SCLEROSIS
     Route: 042
     Dates: start: 20081105
  2. AVONEX [Concomitant]
     Route: 030
     Dates: start: 20000410
  3. AVONEX [Concomitant]
     Route: 030
  4. AVONEX [Concomitant]
     Route: 030
     Dates: start: 20090201

REACTIONS (4)
  - MULTIPLE SCLEROSIS [None]
  - DRUG INEFFECTIVE [None]
  - MALAISE [None]
  - NASOPHARYNGITIS [None]
